FAERS Safety Report 6999853-2 (Version None)
Quarter: 2010Q3

REPORT INFORMATION
  Report Type: 
  Country: None (occurrence: None)
  Receive Date: 20100920
  Receipt Date: 20070924
  Transmission Date: 20110219
  Serious: No
  Sender: FDA-Public Use
  Company Number: US-ASTRAZENECA-2009SE20059

PATIENT
  Age: 43 Year
  Sex: Male
  Weight: 235 kg

DRUGS (6)
  1. SEROQUEL [Suspect]
     Route: 048
     Dates: start: 20030730
  2. LISINOPRIL [Concomitant]
     Dates: start: 20030101
  3. GLUCOPHAGE [Concomitant]
     Dates: start: 20040101
  4. ALTACE [Concomitant]
     Dates: start: 20040101
  5. CELEXA [Concomitant]
     Dates: start: 20040101
  6. ASPIRIN [Concomitant]
     Dates: start: 20040101

REACTIONS (10)
  - ASTHMA [None]
  - BACK PAIN [None]
  - CHRONIC OBSTRUCTIVE PULMONARY DISEASE [None]
  - DIABETES MELLITUS [None]
  - HYPERTENSION [None]
  - NICOTINE DEPENDENCE [None]
  - OBESITY [None]
  - PROCTALGIA [None]
  - RESPIRATORY DISTRESS [None]
  - SLEEP APNOEA SYNDROME [None]
